FAERS Safety Report 7006096-5 (Version None)
Quarter: 2010Q3

REPORT INFORMATION
  Report Type: 
  Country: None (occurrence: None)
  Receive Date: 20100921
  Receipt Date: 20100909
  Transmission Date: 20110219
  Serious: Yes (Other)
  Sender: FDA-Public Use
  Company Number: BR-PFIZER INC-2010114109

PATIENT
  Sex: Female
  Weight: 74 kg

DRUGS (4)
  1. XALATAN [Suspect]
     Indication: OPEN ANGLE GLAUCOMA
     Dosage: 3 UG (1 DROP IN EACH EYE)
     Route: 047
     Dates: start: 19960101
  2. LUMIGAN [Suspect]
     Dosage: UNK
  3. DICLOFENAC SODIUM [Concomitant]
     Dosage: UNK
     Dates: start: 19960101
  4. DIAZEPAM [Concomitant]
     Dosage: UNK
     Dates: start: 19960101

REACTIONS (8)
  - BLINDNESS TRANSIENT [None]
  - DRUG INEFFECTIVE [None]
  - EYE IRRITATION [None]
  - HEADACHE [None]
  - MALAISE [None]
  - OCULAR HYPERAEMIA [None]
  - VISION BLURRED [None]
  - WEIGHT DECREASED [None]
